FAERS Safety Report 9502225 (Version 1)
Quarter: 2013Q3

REPORT INFORMATION
  Report Type: Report from Study
  Country: US (occurrence: US)
  Receive Date: 20130906
  Receipt Date: 20130906
  Transmission Date: 20140515
  Serious: Yes (Hospitalization, Other)
  Sender: FDA-Public Use
  Company Number: US-JNJFOC-20130900165

PATIENT
  Age: 15 Year
  Sex: Male
  Weight: 44.45 kg

DRUGS (5)
  1. REMICADE [Suspect]
     Indication: CROHN^S DISEASE
     Route: 042
     Dates: start: 20130726
  2. REMICADE [Suspect]
     Indication: CROHN^S DISEASE
     Route: 042
     Dates: start: 2012
  3. PREDNISONE [Suspect]
     Indication: PRODUCT USED FOR UNKNOWN INDICATION
     Route: 065
  4. VANCOMYCIN [Suspect]
     Indication: PNEUMONIA
     Route: 042
     Dates: start: 20130820
  5. BENADRYL [Suspect]
     Indication: ADVERSE DRUG REACTION
     Route: 065
     Dates: start: 201308

REACTIONS (3)
  - Pneumonia [Not Recovered/Not Resolved]
  - Dehydration [Unknown]
  - Pulmonary mycosis [Not Recovered/Not Resolved]
